FAERS Safety Report 6123628-X (Version None)
Quarter: 2009Q1

REPORT INFORMATION
  Report Type: 
  Country: None (occurrence: None)
  Receive Date: 20090319
  Receipt Date: 20090313
  Transmission Date: 20090719
  Serious: Yes (Other)
  Sender: FDA-Public Use
  Company Number: US-JNJFOC-20090303904

PATIENT
  Sex: Male
  Weight: 83.92 kg

DRUGS (7)
  1. DURAGESIC-100 [Suspect]
     Indication: BACK INJURY
     Route: 062
  2. HYTRIN [Concomitant]
     Indication: HYPERTENSION
     Route: 048
  3. LISINOPRIL [Concomitant]
     Indication: HYPERTENSION
     Route: 048
  4. SYNTHROID [Concomitant]
     Indication: HYPOTHYROIDISM
     Route: 048
  5. CYMBALTA [Concomitant]
     Indication: DEPRESSION
     Route: 048
  6. ACIPHEX [Concomitant]
     Indication: GASTROOESOPHAGEAL REFLUX DISEASE
     Route: 048
  7. PERCOCET [Concomitant]
     Indication: BREAKTHROUGH PAIN
     Dosage: 5/325 MG - 1/2 TABLET TWICE DAILY
     Route: 048

REACTIONS (2)
  - APPLICATION SITE RASH [None]
  - RESORPTION BONE INCREASED [None]
